FAERS Safety Report 18957370 (Version 1)
Quarter: 2021Q1

REPORT INFORMATION
  Report Type: Report from Study
  Country: GB (occurrence: GB)
  Receive Date: 20210302
  Receipt Date: 20210302
  Transmission Date: 20210420
  Serious: Yes (Death)
  Sender: FDA-Public Use
  Company Number: NVSC2020GB268266

PATIENT
  Age: 66 Year
  Sex: Female

DRUGS (9)
  1. BYL719 [Suspect]
     Active Substance: ALPELISIB
     Dosage: 150 MG
     Route: 065
     Dates: end: 20200824
  2. BYL719 [Suspect]
     Active Substance: ALPELISIB
     Indication: BREAST CANCER METASTATIC
     Dosage: UNK
     Route: 065
     Dates: start: 20200731
  3. BYL719 [Suspect]
     Active Substance: ALPELISIB
     Dosage: 300 MG
     Route: 065
  4. BYL719 [Suspect]
     Active Substance: ALPELISIB
     Dosage: 100 MG
     Route: 065
  5. BYL719 [Suspect]
     Active Substance: ALPELISIB
     Dosage: 250 MG
     Route: 065
  6. BYL719 [Suspect]
     Active Substance: ALPELISIB
     Dosage: 150 MG
     Route: 065
  7. PREDNISOLONE. [Concomitant]
     Active Substance: PREDNISOLONE
     Indication: PRODUCT USED FOR UNKNOWN INDICATION
     Dosage: 10 MG (TAPERING DOSE)
     Route: 065
  8. FASLODEX [Concomitant]
     Active Substance: FULVESTRANT
     Indication: PRODUCT USED FOR UNKNOWN INDICATION
     Dosage: UNK
     Route: 065
  9. BYL719 [Suspect]
     Active Substance: ALPELISIB
     Dosage: 200 MG
     Route: 065
     Dates: start: 20200817

REACTIONS (4)
  - Rash [Recovering/Resolving]
  - Death [Fatal]
  - Paraesthesia [Recovering/Resolving]
  - Skin reaction [Unknown]

NARRATIVE: CASE EVENT DATE: 20200812
